FAERS Safety Report 21266951 (Version 3)
Quarter: 2025Q3

REPORT INFORMATION
  Report Type: Report from Study
  Country: US (occurrence: US)
  Receive Date: 20220829
  Receipt Date: 20250710
  Transmission Date: 20251020
  Serious: Yes (Other)
  Sender: JAZZ
  Company Number: US-GW PHARMA-2022-US-028004

PATIENT
  Age: 18 Year
  Sex: Male

DRUGS (1)
  1. EPIDIOLEX [Suspect]
     Active Substance: CANNABIDIOL
     Indication: Product used for unknown indication
     Dosage: 3 MILLILITER, BID
     Route: 048

REACTIONS (1)
  - Abnormal behaviour [Unknown]

NARRATIVE: CASE EVENT DATE: 20220825
